FAERS Safety Report 24842526 (Version 1)
Quarter: 2025Q1

REPORT INFORMATION
  Report Type: Spontaneous
  Country: GB (occurrence: GB)
  Receive Date: 20250115
  Receipt Date: 20250115
  Transmission Date: 20250408
  Serious: Yes (Hospitalization, Other)
  Sender: NOVO NORDISK
  Company Number: None

PATIENT
  Age: 59 Year
  Sex: Female
  Weight: 44 kg

DRUGS (4)
  1. ESTRADIOL HEMIHYDRATE [Suspect]
     Active Substance: ESTRADIOL HEMIHYDRATE
     Indication: Vulvovaginal dryness
     Dates: start: 20241211, end: 20241229
  2. SPIRONOLACTONE [Concomitant]
     Active Substance: SPIRONOLACTONE
     Indication: Ascites
     Dates: start: 202006
  3. ESTRONE [Suspect]
     Active Substance: ESTRONE
     Indication: Vulvovaginal dryness
     Dates: start: 20241211, end: 20241229
  4. ESTRIOL [Suspect]
     Active Substance: ESTRIOL
     Indication: Vulvovaginal dryness
     Dates: start: 20241211, end: 20241229

REACTIONS (9)
  - Circulatory collapse [Unknown]
  - Melaena [Unknown]
  - Hypertension [Recovered/Resolved]
  - Gastric haemorrhage [Unknown]
  - Medication error [Unknown]
  - Feeling hot [Unknown]
  - Dizziness [Unknown]
  - Dizziness [Unknown]
  - Nausea [Unknown]

NARRATIVE: CASE EVENT DATE: 20241225
